FAERS Safety Report 7623335-8 (Version None)
Quarter: 2011Q3

REPORT INFORMATION
  Report Type: 
  Country: None (occurrence: None)
  Receive Date: 20110720
  Receipt Date: 20110708
  Transmission Date: 20111222
  Serious: Yes (Hospitalization)
  Sender: FDA-Public Use
  Company Number: UA-JNJFOC-20110505415

PATIENT
  Sex: Female
  Weight: 87 kg

DRUGS (11)
  1. PALIPERIDONE [Suspect]
     Route: 030
     Dates: start: 20110111, end: 20110111
  2. PALIPERIDONE [Suspect]
     Indication: SCHIZOPHRENIA
     Route: 030
     Dates: start: 20101115, end: 20101115
  3. PALIPERIDONE [Suspect]
     Route: 030
     Dates: start: 20101015, end: 20101015
  4. PALIPERIDONE [Suspect]
     Route: 030
     Dates: start: 20100716, end: 20100716
  5. PALIPERIDONE [Suspect]
     Route: 030
     Dates: start: 20100816, end: 20100816
  6. PALIPERIDONE [Suspect]
     Route: 030
     Dates: start: 20100709, end: 20100709
  7. PALIPERIDONE [Suspect]
     Route: 030
     Dates: start: 20110412, end: 20110412
  8. PALIPERIDONE [Suspect]
     Route: 030
     Dates: start: 20100916, end: 20100916
  9. PALIPERIDONE [Suspect]
     Route: 030
     Dates: start: 20110209, end: 20110209
  10. PALIPERIDONE [Suspect]
     Route: 030
     Dates: start: 20101214, end: 20101214
  11. PALIPERIDONE [Suspect]
     Route: 030
     Dates: start: 20110314, end: 20110314

REACTIONS (1)
  - SCHIZOPHRENIA [None]
